FAERS Safety Report 9820971 (Version 1)
Quarter: 2013Q4

REPORT INFORMATION
  Report Type: Spontaneous
  Country: US (occurrence: None)
  Receive Date: 20131025
  Receipt Date: 20131025
  Transmission Date: 20140711
  Serious: No
  Sender: FDA-Public Use
  Company Number: AP356-00012-SPO-US

PATIENT
  Age: 62 Year
  Sex: Male
  Weight: 158 kg

DRUGS (8)
  1. BELVIQ (LORCASERIN HYDROCHLORIDE) [Suspect]
     Route: 048
     Dates: start: 20130625, end: 20130708
  2. GLUCOPHAGE (METFORMIN) [Concomitant]
  3. ACTOS (PIOGLITAZONE) [Concomitant]
  4. HUMALOG (INSULIN) [Concomitant]
  5. LYRICA (PREGABALIN) [Concomitant]
  6. CELEBREX (CELECOXIB) [Concomitant]
  7. ACUPRIL (QUINAPRIL HYDROCHLORIDE) [Concomitant]
  8. SYNTHROID (LEVOTHYROXINE SODIUM) [Concomitant]

REACTIONS (2)
  - Balance disorder [None]
  - Grip strength decreased [None]
